FAERS Safety Report 9564940 (Version 2)
Quarter: 2013Q4

REPORT INFORMATION
  Report Type: Spontaneous
  Country: JP (occurrence: JP)
  Receive Date: 20130930
  Receipt Date: 20131009
  Transmission Date: 20140711
  Serious: Yes (Other)
  Sender: FDA-Public Use
  Company Number: JP-PFIZER INC-2013275590

PATIENT
  Sex: Male

DRUGS (2)
  1. CELECOX [Suspect]
     Route: 048
  2. WARFARIN [Suspect]

REACTIONS (1)
  - Haemorrhage [Unknown]
